FAERS Safety Report 7340659-2 (Version None)
Quarter: 2011Q1

REPORT INFORMATION
  Report Type: 
  Country: None (occurrence: None)
  Receive Date: 20110309
  Receipt Date: 20110303
  Transmission Date: 20110831
  Serious: Yes (Death)
  Sender: FDA-Public Use
  Company Number: DE-ROCHE-757148

PATIENT
  Sex: Male
  Weight: 75 kg

DRUGS (3)
  1. TRASTUZUMAB [Suspect]
     Route: 042
     Dates: start: 20110117, end: 20110117
  2. CISPLATIN [Suspect]
     Route: 042
     Dates: start: 20110117, end: 20110117
  3. 5-FU [Suspect]
     Route: 042
     Dates: start: 20110117, end: 20110121

REACTIONS (1)
  - DEATH [None]
